FAERS Safety Report 7335857-8 (Version None)
Quarter: 2011Q1

REPORT INFORMATION
  Report Type: 
  Country: None (occurrence: None)
  Receive Date: 20110307
  Receipt Date: 20110224
  Transmission Date: 20110831
  Serious: Yes (Other)
  Sender: FDA-Public Use
  Company Number: CA-JNJFOC-20110300224

PATIENT
  Sex: Male
  Weight: 68.9 kg

DRUGS (2)
  1. REMICADE [Suspect]
     Indication: PRODUCT USED FOR UNKNOWN INDICATION
     Route: 042
  2. MARIJUANA [Concomitant]
     Dosage: DAILY
     Route: 065

REACTIONS (3)
  - MUSCULAR WEAKNESS [None]
  - BURNING SENSATION [None]
  - PAIN IN EXTREMITY [None]
